FAERS Safety Report 21360425 (Version 1)
Quarter: 2022Q3

REPORT INFORMATION
  Report Type: Spontaneous
  Country: US (occurrence: None)
  Receive Date: 20220921
  Receipt Date: 20220921
  Transmission Date: 20221027
  Serious: Yes (Hospitalization)
  Sender: FDA-Public Use
  Company Number: None

PATIENT
  Sex: Female
  Weight: 104.8 kg

DRUGS (2)
  1. CARBOPLATIN [Suspect]
     Active Substance: CARBOPLATIN
     Dates: end: 20220829
  2. TAXOL [Suspect]
     Active Substance: PACLITAXEL
     Dates: end: 20220822

REACTIONS (5)
  - Fall [None]
  - Neck pain [None]
  - Asthenia [None]
  - Fatigue [None]
  - Cervical vertebral fracture [None]

NARRATIVE: CASE EVENT DATE: 20220910
